FAERS Safety Report 20770138 (Version 1)
Quarter: 2022Q2

REPORT INFORMATION
  Report Type: Spontaneous
  Country: CN (occurrence: CN)
  Receive Date: 20220429
  Receipt Date: 20220429
  Transmission Date: 20220721
  Serious: Yes (Life-Threatening, Hospitalization, Other)
  Sender: FDA-Public Use
  Company Number: CN-009507513-2204CHN009700

PATIENT
  Age: 58 Year
  Sex: Male
  Weight: 57 kg

DRUGS (3)
  1. KEYTRUDA [Suspect]
     Active Substance: PEMBROLIZUMAB
     Indication: Hepatocellular carcinoma
     Dosage: 200 MG, ONCE, IV DRIP
     Route: 041
     Dates: start: 20220414, end: 20220414
  2. LENVATINIB MESYLATE [Suspect]
     Active Substance: LENVATINIB MESYLATE
     Indication: Hepatocellular carcinoma
     Dosage: 8 MG, QD, ORAL
     Route: 048
     Dates: start: 20220113, end: 20220415
  3. SODIUM CHLORIDE [Concomitant]
     Active Substance: SODIUM CHLORIDE
     Indication: Medication dilution
     Dosage: STRENGTH: 0.9%, 50 ML (ALSO REPORTED AS 100 ML, CONFLICT INFORMATION), ONCE, IV DRIP
     Route: 041
     Dates: start: 20220414, end: 20220414

REACTIONS (1)
  - Immune-mediated hepatitis [Not Recovered/Not Resolved]

NARRATIVE: CASE EVENT DATE: 20220422
